FAERS Safety Report 14347359 (Version 1)
Quarter: 2018Q1

REPORT INFORMATION
  Report Type: Spontaneous
  Country: US (occurrence: US)
  Receive Date: 20180102
  Receipt Date: 20180102
  Transmission Date: 20180509
  Serious: Yes (Other)
  Sender: FDA-Public Use
  Company Number: None

PATIENT
  Age: 56 Year
  Sex: Female
  Weight: 60.3 kg

DRUGS (4)
  1. PROBIOTICS [Concomitant]
     Active Substance: PROBIOTICS NOS
  2. MULTI VITAMIN [Concomitant]
     Active Substance: VITAMINS
  3. BUPROPION HCL XL 150 MG [Suspect]
     Active Substance: BUPROPION HYDROCHLORIDE
     Indication: DEPRESSION
     Dosage: ?          QUANTITY:3 TABLET(S);?
     Route: 048
     Dates: start: 20171213, end: 20180102
  4. FISH OIL [Concomitant]
     Active Substance: FISH OIL

REACTIONS (5)
  - Gastrointestinal disorder [None]
  - Depression [None]
  - Product substitution issue [None]
  - Abdominal discomfort [None]
  - Crying [None]

NARRATIVE: CASE EVENT DATE: 20171215
